FAERS Safety Report 15073237 (Version 1)
Quarter: 2018Q2

REPORT INFORMATION
  Report Type: Spontaneous
  Country: GR (occurrence: GR)
  Receive Date: 20180627
  Receipt Date: 20180627
  Transmission Date: 20180711
  Serious: Yes (Hospitalization)
  Sender: FDA-Public Use
  Company Number: GR-TEVA-2018-GR-916706

PATIENT
  Age: 60 Year
  Sex: Female
  Weight: 120 kg

DRUGS (5)
  1. FENOFIBRATE. [Suspect]
     Active Substance: FENOFIBRATE
     Route: 048
     Dates: start: 2013, end: 2013
  2. PRAVASTATIN. [Suspect]
     Active Substance: PRAVASTATIN
     Indication: DYSLIPIDAEMIA
     Route: 048
     Dates: start: 2015, end: 2015
  3. SIMVASTATIN. [Suspect]
     Active Substance: SIMVASTATIN
     Route: 048
     Dates: start: 2016, end: 2016
  4. FENOFIBRATE. [Suspect]
     Active Substance: FENOFIBRATE
     Indication: DYSLIPIDAEMIA
     Route: 048
     Dates: start: 2016, end: 2016
  5. ATORVASTATIN 20 MG [Suspect]
     Active Substance: ATORVASTATIN
     Indication: DYSLIPIDAEMIA
     Route: 048
     Dates: start: 2017, end: 2017

REACTIONS (4)
  - Pancreatitis [Recovered/Resolved]
  - Myalgia [Recovered/Resolved]
  - Alanine aminotransferase [Recovered/Resolved]
  - Aspartate aminotransferase [Recovered/Resolved]

NARRATIVE: CASE EVENT DATE: 2013
